FAERS Safety Report 24942910 (Version 1)
Quarter: 2025Q1

REPORT INFORMATION
  Report Type: Spontaneous
  Country: US (occurrence: US)
  Receive Date: 20250207
  Receipt Date: 20250207
  Transmission Date: 20250408
  Serious: Yes (Hospitalization)
  Sender: PFIZER
  Company Number: US-PFIZER INC-PV202300107163

PATIENT
  Age: 75 Year
  Sex: Male

DRUGS (5)
  1. BRAFTOVI [Suspect]
     Active Substance: ENCORAFENIB
     Dosage: 300 MG, DAILY (2 CAPSULE)
     Route: 048
  2. BRAFTOVI [Suspect]
     Active Substance: ENCORAFENIB
     Dosage: 4 DF, 1X/DAY (TAKE 4 CAPS PO QD)
     Route: 048
  3. BRAFTOVI [Suspect]
     Active Substance: ENCORAFENIB
     Dosage: 2 DF, 2X/DAY (TAKE 2 CAPS PO 2 TIMES DAILY)
     Route: 048
  4. BRAFTOVI [Suspect]
     Active Substance: ENCORAFENIB
     Dosage: 150 MG, 2X/DAY (TAKE 2 CAPSULES 2 TIMES DAILY)
     Route: 048
  5. MEKTOVI [Suspect]
     Active Substance: BINIMETINIB
     Dosage: 30 MG, 2X/DAY (TAKE 2 TABS BID/TAKE 2 TABS BY MOUTH 2 TIMES DAILY)
     Route: 048

REACTIONS (4)
  - Craniofacial fracture [Unknown]
  - Fall [Unknown]
  - Off label use [Unknown]
  - Intentional product misuse [Unknown]
